FAERS Safety Report 10408115 (Version 1)
Quarter: 2014Q3

REPORT INFORMATION
  Report Type: Spontaneous
  Country: DE (occurrence: DE)
  Receive Date: 20140825
  Receipt Date: 20140825
  Transmission Date: 20150326
  Serious: Yes (Hospitalization)
  Sender: FDA-Public Use
  Company Number: DE-ROCHE-1453599

PATIENT
  Age: 77 Year
  Sex: Male

DRUGS (2)
  1. ROFERON-A [Suspect]
     Active Substance: INTERFERON ALFA-2A
     Route: 058
  2. ROFERON-A [Suspect]
     Active Substance: INTERFERON ALFA-2A
     Indication: HAIRY CELL LEUKAEMIA
     Route: 058

REACTIONS (2)
  - Malaise [Not Recovered/Not Resolved]
  - Aortic surgery [Unknown]

NARRATIVE: CASE EVENT DATE: 20131113
